FAERS Safety Report 7739331-6 (Version None)
Quarter: 2011Q3

REPORT INFORMATION
  Report Type: 
  Country: None (occurrence: None)
  Receive Date: 20110909
  Receipt Date: 20110902
  Transmission Date: 20111222
  Serious: Yes (Other)
  Sender: FDA-Public Use
  Company Number: US-TEVA-297162USA

PATIENT
  Sex: Female

DRUGS (5)
  1. ACCON [Concomitant]
     Dosage: 4 MILLIGRAM;
  2. ACETYLSALICYLIC ACID SRT [Concomitant]
     Dosage: 81 MILLIGRAM;
     Route: 048
  3. HYDROCHLOROTHIAZIDE [Concomitant]
     Indication: HYPERTENSION
     Dosage: 25 MILLIGRAM;
  4. CENTRUM MULTIVITAMIN [Concomitant]
  5. PRAVASTATIN [Suspect]
     Indication: LOW DENSITY LIPOPROTEIN INCREASED
     Dosage: 20 MILLIGRAM;
     Route: 048
     Dates: start: 20090908

REACTIONS (1)
  - MYASTHENIA GRAVIS [None]
